FAERS Safety Report 7534439-2 (Version None)
Quarter: 2011Q2

REPORT INFORMATION
  Report Type: 
  Country: None (occurrence: None)
  Receive Date: 20110608
  Receipt Date: 20110524
  Transmission Date: 20111010
  Serious: Yes (Other)
  Sender: FDA-Public Use
  Company Number: FR-WATSON-2011-07858

PATIENT
  Age: 55 Year
  Sex: Male

DRUGS (1)
  1. FLUOROURACIL [Suspect]
     Indication: CHEMOTHERAPY
     Route: 065

REACTIONS (7)
  - NEUTROPENIA [None]
  - CONVULSION [None]
  - LOSS OF CONSCIOUSNESS [None]
  - NEUROTOXICITY [None]
  - METABOLIC ENCEPHALOPATHY [None]
  - PREDISPOSITION TO DISEASE [None]
  - SEPSIS [None]
